FAERS Safety Report 8134527-6 (Version None)
Quarter: 2012Q1

REPORT INFORMATION
  Report Type: 
  Country: None (occurrence: None)
  Receive Date: 20120214
  Receipt Date: 20120209
  Transmission Date: 20120608
  Serious: Yes (Other)
  Sender: FDA-Public Use
  Company Number: US-PFIZER INC-2012036621

PATIENT
  Sex: Female
  Weight: 134.69 kg

DRUGS (8)
  1. GABAPENTIN [Concomitant]
     Dosage: UNK
  2. ABILIFY [Concomitant]
     Dosage: UNK
  3. VITAMIN D [Concomitant]
     Dosage: UNK, AS NEEDED
  4. CHANTIX [Suspect]
     Indication: SMOKING CESSATION THERAPY
     Dosage: 0.5 MG, 1X/DAY
     Route: 048
     Dates: start: 20090101
  5. METFORMIN [Concomitant]
     Dosage: UNK
  6. VITAMIN B-12 [Concomitant]
     Dosage: UNK, AS NEEDED
  7. CHANTIX [Suspect]
     Dosage: UNK
     Route: 048
     Dates: end: 20100101
  8. ACETYLSALICYLIC ACID [Concomitant]
     Dosage: UNK

REACTIONS (7)
  - NERVOUS SYSTEM DISORDER [None]
  - MEMORY IMPAIRMENT [None]
  - DRUG EFFECT DECREASED [None]
  - WEIGHT DECREASED [None]
  - HYPOAESTHESIA [None]
  - PARALYSIS [None]
  - TREMOR [None]
